FAERS Safety Report 6638297-X (Version None)
Quarter: 2010Q1

REPORT INFORMATION
  Report Type: 
  Country: None (occurrence: None)
  Receive Date: 20100317
  Receipt Date: 20100308
  Transmission Date: 20100710
  Serious: Yes (Hospitalization)
  Sender: FDA-Public Use
  Company Number: BR-ASTRAZENECA-2010SE10126

PATIENT
  Age: 64 Year
  Sex: Male
  Weight: 38 kg

DRUGS (4)
  1. ATACAND [Suspect]
     Indication: HYPERTENSION
     Route: 048
     Dates: start: 20050101, end: 20090901
  2. ATACAND [Suspect]
     Route: 048
     Dates: start: 20090901
  3. ATACAND HCT [Suspect]
     Indication: HYPERTENSION
     Dosage: 16/12.5 MG ONE TABLET DAILY
     Route: 048
     Dates: start: 20090901, end: 20090901
  4. FORASEQ [Concomitant]
     Indication: BRONCHITIS
     Route: 055
     Dates: start: 20070101

REACTIONS (3)
  - HERNIA [None]
  - MEDICATION ERROR [None]
  - POLLAKIURIA [None]
